FAERS Safety Report 10464462 (Version 1)
Quarter: 2014Q3

REPORT INFORMATION
  Report Type: Spontaneous
  Country: IT (occurrence: IT)
  Receive Date: 20140919
  Receipt Date: 20140919
  Transmission Date: 20150326
  Serious: Yes (Hospitalization)
  Sender: FDA-Public Use
  Company Number: IT-PFIZER INC-2014259117

PATIENT
  Age: 68 Year
  Sex: Male

DRUGS (7)
  1. CLEXANE [Concomitant]
     Active Substance: ENOXAPARIN SODIUM
  2. MS CONTIN [Suspect]
     Active Substance: MORPHINE SULFATE
     Indication: CANCER PAIN
     Dosage: (30 MG) 1 DF, DAILY
     Route: 048
     Dates: start: 20140422, end: 20140522
  3. ENAPREN [Concomitant]
     Active Substance: ENALAPRIL MALEATE
  4. MORPHINE HCL [Suspect]
     Active Substance: MORPHINE HYDROCHLORIDE
     Dosage: 10 MG, AS NEEDED
     Route: 042
     Dates: start: 20140422, end: 20140522
  5. METOPROLOL [Concomitant]
     Active Substance: METOPROLOL
  6. ZOFRAN [Concomitant]
     Active Substance: ONDANSETRON HYDROCHLORIDE
  7. PLASIL [Concomitant]
     Active Substance: METOCLOPRAMIDE HYDROCHLORIDE

REACTIONS (2)
  - Gastrointestinal hypomotility [Recovered/Resolved]
  - Ileus paralytic [Recovered/Resolved]

NARRATIVE: CASE EVENT DATE: 20140522
